FAERS Safety Report 10764175 (Version 2)
Quarter: 2015Q1

REPORT INFORMATION
  Report Type: Spontaneous
  Country: US (occurrence: US)
  Receive Date: 20150204
  Receipt Date: 20150209
  Transmission Date: 20150721
  Serious: Yes (Death, Hospitalization)
  Sender: FDA-Public Use
  Company Number: PHHY2015US013364

PATIENT
  Age: 62 Year
  Sex: Female

DRUGS (5)
  1. HYDROXYCHLOROQUINE [Suspect]
     Active Substance: HYDROXYCHLOROQUINE
     Indication: SYSTEMIC LUPUS ERYTHEMATOSUS
     Route: 065
  2. PREDNISONE. [Suspect]
     Active Substance: PREDNISONE
     Indication: SYSTEMIC LUPUS ERYTHEMATOSUS
     Route: 065
  3. CYCLOPHOSPHAMIDE. [Suspect]
     Active Substance: CYCLOPHOSPHAMIDE
     Indication: SYSTEMIC LUPUS ERYTHEMATOSUS
     Route: 065
  4. MYCOPHENOLIC ACID. [Suspect]
     Active Substance: MYCOPHENOLIC ACID
     Indication: SYSTEMIC LUPUS ERYTHEMATOSUS
     Route: 065
  5. RITUXIMAB [Suspect]
     Active Substance: RITUXIMAB
     Indication: HAEMOLYTIC ANAEMIA
     Route: 065

REACTIONS (16)
  - Bronchopneumonia [Fatal]
  - Posterior reversible encephalopathy syndrome [Fatal]
  - Generalised tonic-clonic seizure [Fatal]
  - General physical health deterioration [Fatal]
  - Myoclonus [Fatal]
  - Mental status changes [Fatal]
  - Sepsis [Fatal]
  - Bradycardia [Fatal]
  - Disorientation [Fatal]
  - Delirium [Fatal]
  - Metabolic acidosis [Fatal]
  - Somnolence [Fatal]
  - Headache [Fatal]
  - Hypotension [Fatal]
  - Disease progression [Fatal]
  - Respiratory distress [Fatal]
